FAERS Safety Report 7051323-1 (Version None)
Quarter: 2010Q4

REPORT INFORMATION
  Report Type: 
  Country: None (occurrence: None)
  Receive Date: 20101012
  Receipt Date: 20100930
  Transmission Date: 20110411
  Serious: Yes (Hospitalization, Other)
  Sender: FDA-Public Use
  Company Number: 2010US003565

PATIENT
  Age: 72 Year
  Sex: Female

DRUGS (15)
  1. VESICARE [Suspect]
     Indication: URINARY INCONTINENCE
     Dosage: 10 MG, UID/QD, ORAL
     Route: 048
     Dates: start: 20100617, end: 20100723
  2. BACTRIM DS [Concomitant]
  3. ASPIRIN [Concomitant]
  4. DIGOXIN [Concomitant]
  5. LASIX [Concomitant]
  6. ROXICET [Concomitant]
  7. CYMBALTA [Concomitant]
  8. METOLAZONE [Concomitant]
  9. POTASSIUM CHLORIDE [Concomitant]
  10. TRAMADOL HCL [Concomitant]
  11. COREG [Concomitant]
  12. ALKA SELTZER (ACETYLSALICYLIC ACID, CALCIUM PHOSPHATE, CITRIC ACID) [Concomitant]
  13. EXTRA STRENGTH TYLENOL [Concomitant]
  14. MULTIVITAMIN [Concomitant]
  15. TEMAZEPAM [Concomitant]

REACTIONS (18)
  - ANAL FISSURE [None]
  - ATRIAL FIBRILLATION [None]
  - BUNDLE BRANCH BLOCK LEFT [None]
  - CARDIOMEGALY [None]
  - DIARRHOEA [None]
  - DRY EYE [None]
  - DRY MOUTH [None]
  - ELECTROCARDIOGRAM ST SEGMENT ABNORMAL [None]
  - ESCHERICHIA SEPSIS [None]
  - HEADACHE [None]
  - HYPOKALAEMIA [None]
  - HYPONATRAEMIA [None]
  - ORAL CANDIDIASIS [None]
  - PAIN [None]
  - PAROTITIS [None]
  - SKIN CANDIDA [None]
  - SUPRAVENTRICULAR EXTRASYSTOLES [None]
  - URINARY TRACT INFECTION [None]
